FAERS Safety Report 12360961 (Version 2)
Quarter: 2016Q2

REPORT INFORMATION
  Report Type: Spontaneous
  Country: US (occurrence: US)
  Receive Date: 20160512
  Receipt Date: 20160620
  Transmission Date: 20160815
  Serious: Yes (Other)
  Sender: FDA-Public Use
  Company Number: US-PFIZER INC-2016251556

PATIENT
  Age: 34 Year
  Sex: Female

DRUGS (4)
  1. BUPROPION. [Interacting]
     Active Substance: BUPROPION
     Dosage: 300 MG, DAILY
     Route: 048
  2. SERTRALINE HCL [Interacting]
     Active Substance: SERTRALINE HYDROCHLORIDE
     Dosage: 100 MG, UNK
     Route: 048
  3. BUPROPION. [Interacting]
     Active Substance: BUPROPION
     Dosage: 150 MG, UNK
     Route: 048
  4. SERTRALINE HCL [Suspect]
     Active Substance: SERTRALINE HYDROCHLORIDE
     Dosage: 300 MG, DAILY
     Route: 048

REACTIONS (5)
  - Bruxism [Unknown]
  - Tooth fracture [Unknown]
  - Overdose [Unknown]
  - Dental caries [Unknown]
  - Drug interaction [Unknown]
